FAERS Safety Report 7151805-8 (Version None)
Quarter: 2010Q4

REPORT INFORMATION
  Report Type: 
  Country: None (occurrence: None)
  Receive Date: 20101210
  Receipt Date: 20101126
  Transmission Date: 20110411
  Serious: Yes (Hospitalization)
  Sender: FDA-Public Use
  Company Number: FR-AMGEN-FRASP2010007489

PATIENT

DRUGS (1)
  1. ENBREL [Suspect]
     Dosage: UNK
     Dates: start: 20100901

REACTIONS (1)
  - RHEUMATOID ARTHRITIS [None]
